FAERS Safety Report 7195556-2 (Version None)
Quarter: 2010Q4

REPORT INFORMATION
  Report Type: 
  Country: None (occurrence: None)
  Receive Date: 20101223
  Receipt Date: 20101005
  Transmission Date: 20110411
  Serious: No
  Sender: FDA-Public Use
  Company Number: US-AMGEN-KDL443255

PATIENT

DRUGS (5)
  1. ENBREL [Suspect]
     Dosage: 50 MG, QWK
     Route: 058
     Dates: start: 20100701
  2. METFORMIN [Concomitant]
     Dosage: UNK UNK, UNK
  3. METHOTREXATE [Concomitant]
     Dosage: UNK UNK, UNK
  4. FOLIC ACID [Concomitant]
     Dosage: UNK UNK, UNK
  5. VALSARTAN [Concomitant]
     Dosage: UNK UNK, UNK

REACTIONS (1)
  - CELLULITIS [None]
